APPROVED DRUG PRODUCT: POTASSIUM CHLORIDE 20MEQ IN DEXTROSE 5% AND SODIUM CHLORIDE 0.225% IN PLASTIC CONTAINER
Active Ingredient: DEXTROSE; POTASSIUM CHLORIDE; SODIUM CHLORIDE
Strength: 5GM/100ML;149MG/100ML;225MG/100ML
Dosage Form/Route: INJECTABLE;INJECTION
Application: A212348 | Product #002 | TE Code: AP
Applicant: FRESENIUS KABI USA LLC
Approved: Jul 30, 2021 | RLD: No | RS: No | Type: RX